FAERS Safety Report 8864150 (Version 1)
Quarter: 2012Q4

REPORT INFORMATION
  Report Type: 
  Country: US (occurrence: US)
  Receive Date: 20121024
  Receipt Date: 20121024
  Transmission Date: 20130627
  Serious: No
  Sender: FDA-Public Use
  Company Number: US-AMGEN-USASP2011066035

PATIENT
  Age: 65 Year
  Sex: Female

DRUGS (8)
  1. ENBREL [Suspect]
     Indication: PRODUCT USED FOR UNKNOWN INDICATION
     Dosage: 50 mg, qwk
     Route: 058
  2. SINGULAIR [Concomitant]
     Dosage: 10 mg, UNK
  3. AUGMENTIN                          /00756801/ [Concomitant]
     Dosage: 250 mg, UNK
  4. LIPITOR [Concomitant]
     Dosage: 20 mg, UNK
  5. IMDUR [Concomitant]
     Dosage: 120 mg, UNK
  6. GERITOL                            /00508001/ [Concomitant]
     Dosage: UNK
  7. FOLIC ACID [Concomitant]
     Dosage: 1 mg, UNK
  8. BENICAR [Concomitant]
     Dosage: 20 mg, UNK

REACTIONS (1)
  - Nasopharyngitis [Unknown]
